FAERS Safety Report 6206809-6 (Version None)
Quarter: 2009Q2

REPORT INFORMATION
  Report Type: 
  Country: None (occurrence: None)
  Receive Date: 20090528
  Receipt Date: 20090520
  Transmission Date: 20091009
  Serious: Yes (Hospitalization)
  Sender: FDA-Public Use
  Company Number: ES-EISAI INC.-E7272-00020-SPO-ES

PATIENT
  Sex: Male

DRUGS (4)
  1. ONTAK [Suspect]
     Indication: T-CELL LYMPHOMA
     Route: 041
     Dates: end: 20090209
  2. ONTAK [Suspect]
     Dosage: UNKNOWN
     Route: 041
  3. ONTAK [Suspect]
     Dosage: UNKNOWN
     Route: 041
  4. ONTAK [Suspect]
     Route: 041

REACTIONS (4)
  - CACHEXIA [None]
  - GASTROINTESTINAL DISORDER [None]
  - NAUSEA [None]
  - PYREXIA [None]
